FAERS Safety Report 7013405-X (Version None)
Quarter: 2010Q3

REPORT INFORMATION
  Report Type: 
  Country: None (occurrence: None)
  Receive Date: 20100924
  Receipt Date: 20100917
  Transmission Date: 20110219
  Serious: Yes (Death, Other)
  Sender: FDA-Public Use
  Company Number: FR-KINGPHARMUSA00001-K201001170

PATIENT
  Age: 84 Year
  Sex: Male

DRUGS (16)
  1. ALTACE [Suspect]
     Indication: HYPERTENSION
     Dosage: 1.25 MG, QD
     Route: 048
     Dates: start: 20100118, end: 20100304
  2. OXOMEMAZINE [Suspect]
     Indication: COUGH
     Dosage: UNK
     Route: 048
     Dates: start: 20100201, end: 20100205
  3. ESOMEPRAZOLE MAGNESIUM [Suspect]
     Dosage: 40 MG, QD
     Route: 048
     Dates: start: 20100103, end: 20100304
  4. ALLOPURINOL [Suspect]
     Dosage: 200 MG, QD
     Route: 048
  5. LASIX [Concomitant]
  6. KARDEGIC [Concomitant]
  7. UMULINE [Concomitant]
  8. NITRODERM [Concomitant]
     Dosage: UNK
     Dates: start: 20100105
  9. EFFERALGAN [Concomitant]
     Dosage: UNK
     Dates: start: 20100101
  10. FLUTICASONE PROPIONATE W/SALMETEROL [Concomitant]
     Dosage: UNK
     Dates: start: 20100208
  11. TAMSULOSIN HCL [Concomitant]
  12. SPECIAFOLDINE [Concomitant]
  13. CALCIPARINE [Concomitant]
     Dosage: UNK
     Dates: start: 20091231, end: 20100119
  14. CEFTRIAXONE [Concomitant]
     Dosage: UNK
     Dates: start: 20100128, end: 20100206
  15. PERINDOPRIL ERBUMINE [Concomitant]
  16. AMOXICILLIN AND CLAVULANATE POTASSIUM [Concomitant]
     Dosage: UNK
     Dates: start: 20091231, end: 20100209

REACTIONS (3)
  - ANAEMIA MACROCYTIC [None]
  - COUGH [None]
  - DEATH [None]
